FAERS Safety Report 18050640 (Version 1)
Quarter: 2020Q3

REPORT INFORMATION
  Report Type: Spontaneous
  Country: US (occurrence: US)
  Receive Date: 20200721
  Receipt Date: 20200721
  Transmission Date: 20201103
  Serious: No
  Sender: FDA-Public Use
  Company Number: US-ANTARES PHARMA, INC.-2020-SPO-TX-0182

PATIENT
  Age: 19 Year
  Sex: Male

DRUGS (4)
  1. LEVOTHYROXINE. [Concomitant]
     Active Substance: LEVOTHYROXINE
     Indication: THYROID DISORDER
  2. VIMPAT [Concomitant]
     Active Substance: LACOSAMIDE
     Indication: PRODUCT USED FOR UNKNOWN INDICATION
  3. XYOSTED [Suspect]
     Active Substance: TESTOSTERONE ENANTHATE
     Indication: HYPOGONADISM
     Dosage: 50 MG/0.5ML, Q2WEEKS
     Route: 058
     Dates: start: 202003
  4. XYOSTED [Suspect]
     Active Substance: TESTOSTERONE ENANTHATE
     Dosage: 50 MG/0.5ML, QWK
     Route: 058
     Dates: start: 201906, end: 202003

REACTIONS (3)
  - Inappropriate schedule of product administration [Unknown]
  - Abdominal pain lower [Not Recovered/Not Resolved]
  - Fat necrosis [Not Recovered/Not Resolved]

NARRATIVE: CASE EVENT DATE: 2020
